FAERS Safety Report 7930917-2 (Version None)
Quarter: 2011Q4

REPORT INFORMATION
  Report Type: 
  Country: None (occurrence: None)
  Receive Date: 20111121
  Receipt Date: 20111115
  Transmission Date: 20120403
  Serious: Yes (Hospitalization, Other)
  Sender: FDA-Public Use
  Company Number: US-ROCHE-778407

PATIENT
  Sex: Male
  Weight: 81.72 kg

DRUGS (2)
  1. ACCUTANE [Suspect]
     Indication: ACNE
     Route: 065
     Dates: start: 19910101, end: 19920101
  2. ACCUTANE [Suspect]
     Route: 065
     Dates: start: 19920128, end: 19931231

REACTIONS (9)
  - INFLAMMATORY BOWEL DISEASE [None]
  - COLITIS ULCERATIVE [None]
  - INTESTINAL HAEMORRHAGE [None]
  - EMOTIONAL DISTRESS [None]
  - CROHN'S DISEASE [None]
  - MALNUTRITION [None]
  - IRON DEFICIENCY ANAEMIA [None]
  - PANCREATITIS [None]
  - ORAL CANDIDIASIS [None]
